FAERS Safety Report 13563164 (Version 1)
Quarter: 2017Q2

REPORT INFORMATION
  Report Type: Spontaneous
  Country: CH (occurrence: CH)
  Receive Date: 20170519
  Receipt Date: 20170519
  Transmission Date: 20170830
  Serious: Yes (Death, Hospitalization)
  Sender: FDA-Public Use
  Company Number: CH-ORION CORPORATION ORION PHARMA-17_00002345

PATIENT
  Age: 73 Year
  Sex: Male
  Weight: 62.9 kg

DRUGS (12)
  1. BILOL [Concomitant]
     Active Substance: BISOPROLOL
     Dosage: STRENGTH: 2.5 MG
     Route: 048
  2. PANTOPRAZOLE [Interacting]
     Active Substance: PANTOPRAZOLE
     Dosage: STRENGTH: 40 MG
     Route: 065
  3. METHOTREXATE. [Interacting]
     Active Substance: METHOTREXATE
     Dosage: STRENGTH: 10 MG
     Route: 048
     Dates: start: 2017
  4. BECOZYM [Concomitant]
     Active Substance: VITAMINS
     Route: 048
  5. ZESTRIL [Concomitant]
     Active Substance: LISINOPRIL
     Dosage: STRENGTH: 5 MG
     Route: 048
  6. KEPPRA [Interacting]
     Active Substance: LEVETIRACETAM
     Dosage: 1-0-0-1 3-0-0-3 UNCHANGED, STRENGTH: 250 MG
     Route: 048
  7. METHOTREXATE. [Suspect]
     Active Substance: METHOTREXATE
     Indication: RHEUMATIC FEVER
     Dosage: MONDAY: 2 PCS AT 08:00; STRENGTH: 10 MG
     Route: 048
     Dates: start: 201608, end: 2017
  8. KEPPRA [Interacting]
     Active Substance: LEVETIRACETAM
     Dosage: STRENGTH: 500 MG
     Route: 048
  9. FELDEN [Interacting]
     Active Substance: PIROXICAM
     Dosage: STRENGTH: 20 MG
     Route: 065
  10. ACIDUM FOLICUM STREULI [Concomitant]
     Active Substance: FOLIC ACID
     Dosage: TUESDAY: 1 DF AT 08:00; STRENGTH: 5 MG
     Route: 048
  11. LIXIANA [Concomitant]
     Active Substance: EDOXABAN TOSYLATE
     Route: 048
     Dates: end: 20170131
  12. ELIQUIS [Interacting]
     Active Substance: APIXABAN
     Dosage: STRENGTH: 2.5 MG
     Route: 048
     Dates: start: 20170207

REACTIONS (16)
  - Cardiac failure [Fatal]
  - Abdominal discomfort [Unknown]
  - Oral herpes [Unknown]
  - Influenza [Unknown]
  - Bone marrow toxicity [Unknown]
  - Haematotoxicity [Unknown]
  - Pancytopenia [Fatal]
  - Overdose [Unknown]
  - Faeces discoloured [Unknown]
  - Febrile neutropenia [Unknown]
  - Pneumonia aspiration [Unknown]
  - Intentional product misuse [Unknown]
  - Rash generalised [Unknown]
  - Multiple organ dysfunction syndrome [Fatal]
  - Drug interaction [Unknown]
  - Acute kidney injury [Unknown]

NARRATIVE: CASE EVENT DATE: 2017
